FAERS Safety Report 7511168-2 (Version None)
Quarter: 2011Q2

REPORT INFORMATION
  Report Type: 
  Country: None (occurrence: None)
  Receive Date: 20110531
  Receipt Date: 20080904
  Transmission Date: 20111010
  Serious: Yes (Hospitalization, Other)
  Sender: FDA-Public Use
  Company Number: US-BAYER-200838537NA

PATIENT
  Age: 63 Year
  Sex: Female
  Weight: 122 kg

DRUGS (27)
  1. PROTAMINE SULFATE [Concomitant]
     Dosage: 500 MG, UNK
     Dates: start: 20031127
  2. TRASYLOL [Suspect]
     Indication: CORONARY ARTERY BYPASS
     Dosage: 200 ML, LOADING DOSE
     Route: 042
     Dates: start: 20031127
  3. QUININE SULFATE [Concomitant]
     Dosage: 323, UNK
  4. PLASMA [Concomitant]
     Dosage: 2 U, UNK
     Route: 042
     Dates: start: 20031127
  5. ACIPHEX [Concomitant]
     Dosage: 20 MG, UNK
  6. POLYMYXIN [Concomitant]
     Dosage: 500000 U, UNK
     Dates: start: 20031127
  7. SODIUM BICARBONATE [Concomitant]
     Dosage: UNK
     Dates: start: 20031127
  8. PAVULON [Concomitant]
     Dosage: UNK
     Dates: start: 20031127
  9. HUMALOG [Concomitant]
     Dosage: 10 MG, UNK
  10. VANCOMYCIN [Concomitant]
     Dosage: 1 G, UNK
     Route: 042
     Dates: start: 20031127
  11. ANCEF [Concomitant]
     Dosage: 1 G, UNK
     Route: 042
     Dates: start: 20031127
  12. BACITRACIN [Concomitant]
     Dosage: 50000 U, UNK
     Dates: start: 20031127
  13. CALCIUM CHLORIDE [Concomitant]
     Dosage: UNK
     Dates: start: 20031127
  14. MIDAZOLAM HCL [Concomitant]
     Dosage: UNK
     Dates: start: 20031127
  15. COZAAR [Concomitant]
     Dosage: 20 MG, UNK
  16. PREDNISONE [Concomitant]
     Dosage: 10 MG, UNK
  17. HEPARIN [Concomitant]
     Dosage: 15000 U, UNK
     Dates: start: 20031127
  18. PAPAVERINE [Concomitant]
     Dosage: UNK
     Route: 042
     Dates: start: 20031127
  19. LIDOCAINE [Concomitant]
     Dosage: UNK
     Dates: start: 20031127
  20. FUROSEMIDE [Concomitant]
     Dosage: 80 MG, UNK
  21. LANTUS [Concomitant]
     Dosage: 25 U, UNK
  22. LASIX [Concomitant]
     Dosage: 40 MG, UNK
     Dates: start: 20031127
  23. PLATELETS [Concomitant]
     Dosage: 20 U, UNK
     Route: 042
     Dates: start: 20031127
  24. PLAVIX [Concomitant]
     Dosage: 75 MG, UNK
  25. LIPITOR [Concomitant]
     Dosage: 40 MG, UNK
  26. ATENOLOL [Concomitant]
     Dosage: 25 MG, UNK
  27. MAGNESIUM SULFATE [Concomitant]
     Dosage: UNK
     Dates: start: 20031127

REACTIONS (5)
  - UNEVALUABLE EVENT [None]
  - ANHEDONIA [None]
  - INJURY [None]
  - RENAL FAILURE [None]
  - PAIN [None]
